FAERS Safety Report 17872100 (Version 2)
Quarter: 2020Q3

REPORT INFORMATION
  Report Type: Spontaneous
  Country: US (occurrence: US)
  Receive Date: 20200608
  Receipt Date: 20200929
  Transmission Date: 20201103
  Serious: Yes (Other)
  Sender: FDA-Public Use
  Company Number: US-CELGENEUS-USA-20200600949

PATIENT
  Sex: Male

DRUGS (1)
  1. IDHIFA [Suspect]
     Active Substance: ENASIDENIB MESYLATE
     Indication: ACUTE MYELOID LEUKAEMIA
     Dosage: 100 MILLIGRAM
     Route: 048
     Dates: start: 20190124

REACTIONS (7)
  - Unevaluable event [Unknown]
  - Renal impairment [Unknown]
  - Asthenia [Unknown]
  - Arthritis [Unknown]
  - Stomatitis [Unknown]
  - Confusional state [Unknown]
  - Memory impairment [Unknown]
